FAERS Safety Report 8187936-3 (Version None)
Quarter: 2012Q1

REPORT INFORMATION
  Report Type: 
  Country: None (occurrence: None)
  Receive Date: 20120306
  Receipt Date: 20120228
  Transmission Date: 20120608
  Serious: Yes (Other)
  Sender: FDA-Public Use
  Company Number: JP-GLAXOSMITHKLINE-B0776720A

PATIENT
  Sex: Female

DRUGS (6)
  1. LAMICTAL [Suspect]
     Indication: BIPOLAR DISORDER
     Dosage: 25MG PER DAY
     Route: 048
     Dates: start: 20111212, end: 20120105
  2. LITHIUM CARBONATE [Concomitant]
     Indication: BIPOLAR DISORDER
     Dosage: 400MG PER DAY
     Route: 048
  3. FLUNITRAZEPAM [Concomitant]
     Indication: SLEEP DISORDER
     Dosage: 2MG PER DAY
     Route: 048
  4. MINZAIN [Concomitant]
     Indication: SLEEP DISORDER
     Dosage: .5MG PER DAY
     Route: 048
  5. CLONAZEPAM [Concomitant]
     Indication: BIPOLAR DISORDER
     Dosage: 1.5MG PER DAY
     Route: 048
  6. ZYPREXA [Concomitant]
     Indication: BIPOLAR DISORDER
     Dosage: 2.5MG PER DAY
     Route: 048

REACTIONS (2)
  - AGGRESSION [None]
  - IRRITABILITY [None]
